FAERS Safety Report 4815893-3 (Version None)
Quarter: 2005Q4

REPORT INFORMATION
  Report Type: 
  Country: None (occurrence: None)
  Receive Date: 20051026
  Receipt Date: 20051013
  Transmission Date: 20060501
  Serious: Yes (Hospitalization, Other)
  Sender: FDA-Public Use
  Company Number: 2005072525

PATIENT
  Age: 67 Year
  Sex: Female

DRUGS (5)
  1. CELEBREX [Suspect]
     Indication: PROCEDURAL PAIN
     Dosage: 200 MG (200 MG 1 IN 1D )
     Dates: start: 20040101, end: 20040301
  2. NEURONTIN [Suspect]
     Indication: BACK PAIN
     Dates: start: 20030101
  3. PREMARIN [Suspect]
     Dosage: 1.75 MG
  4. MOBIC [Suspect]
  5. SYNTHROID [Concomitant]

REACTIONS (14)
  - CYST DRAINAGE [None]
  - DRUG EFFECT DECREASED [None]
  - DRUG INEFFECTIVE [None]
  - FEELING ABNORMAL [None]
  - GASTRIC DISORDER [None]
  - INFECTION [None]
  - LOCALISED INFECTION [None]
  - PROCEDURAL PAIN [None]
  - PULMONARY EMBOLISM [None]
  - PULMONARY THROMBOSIS [None]
  - SEROMA [None]
  - SPINAL FUSION SURGERY [None]
  - THROMBOSIS [None]
  - WEIGHT INCREASED [None]
